FAERS Safety Report 10027934 (Version 1)
Quarter: 2014Q1

REPORT INFORMATION
  Report Type: Spontaneous
  Country: FR (occurrence: FR)
  Receive Date: 20140321
  Receipt Date: 20140321
  Transmission Date: 20141002
  Serious: Yes (Hospitalization)
  Sender: FDA-Public Use
  Company Number: FR-CELGENEUS-056-POMAL-14031326

PATIENT
  Age: 73 Year
  Sex: Female

DRUGS (11)
  1. IMNOVID [Suspect]
     Indication: PLASMA CELL MYELOMA
     Dosage: 3 MILLIGRAM
     Route: 048
     Dates: start: 20140118, end: 20140211
  2. DEXAMETHASONE [Concomitant]
     Indication: PLASMA CELL MYELOMA
     Route: 048
     Dates: start: 20140118
  3. DEXAMETHASONE [Concomitant]
     Route: 065
     Dates: start: 2004
  4. DEXAMETHASONE [Concomitant]
     Route: 065
     Dates: start: 2007
  5. DEXAMETHASONE [Concomitant]
     Route: 065
     Dates: start: 2009, end: 2011
  6. DEXAMETHASONE [Concomitant]
     Route: 065
     Dates: start: 2013
  7. TINZAPARIN [Concomitant]
     Indication: PRODUCT USED FOR UNKNOWN INDICATION
     Route: 065
  8. CYMBALTA [Concomitant]
     Indication: PRODUCT USED FOR UNKNOWN INDICATION
     Route: 065
  9. ZELITREX [Concomitant]
     Indication: PRODUCT USED FOR UNKNOWN INDICATION
     Dosage: 1000
     Route: 065
  10. PENTACARINATE [Concomitant]
     Indication: PRODUCT USED FOR UNKNOWN INDICATION
     Route: 065
  11. NEURONTIN [Concomitant]
     Indication: PRODUCT USED FOR UNKNOWN INDICATION
     Dosage: 1500
     Route: 065

REACTIONS (2)
  - Alveolitis allergic [Recovering/Resolving]
  - Pleural effusion [Recovering/Resolving]
